FAERS Safety Report 13093872 (Version 1)
Quarter: 2017Q1

REPORT INFORMATION
  Report Type: Spontaneous
  Country: IT (occurrence: IT)
  Receive Date: 20170106
  Receipt Date: 20170106
  Transmission Date: 20170428
  Serious: Yes (Hospitalization)
  Sender: FDA-Public Use
  Company Number: IT-BAYER-2017-000486

PATIENT
  Age: 71 Year
  Sex: Female

DRUGS (1)
  1. CARDIOASPIRIN 100 MG [Suspect]
     Active Substance: ASPIRIN
     Dosage: FOR THREE DAYS

REACTIONS (2)
  - Urticaria [Unknown]
  - Shock [Unknown]

NARRATIVE: CASE EVENT DATE: 20161129
